FAERS Safety Report 7464996 (Version 3)
Quarter: 2013Q4

REPORT INFORMATION
  Report Type: Spontaneous
  Country: US (occurrence: US)
  Receive Date: 20100712
  Receipt Date: 20131025
  Transmission Date: 20140711
  Serious: Yes (Hospitalization)
  Sender: FDA-Public Use
  Company Number: US-BIOGENIDEC-2010BI018530

PATIENT
  Age: 59 Year
  Sex: Female

DRUGS (1)
  1. TYSABRI [Suspect]
     Indication: MULTIPLE SCLEROSIS
     Route: 042
     Dates: start: 20070118, end: 20100414

REACTIONS (5)
  - Colitis [Recovered/Resolved]
  - Intestinal haemorrhage [Recovered/Resolved]
  - Local swelling [Not Recovered/Not Resolved]
  - Gastric ulcer [Recovered/Resolved]
  - Ulcer [Unknown]
